FAERS Safety Report 6596875-0 (Version None)
Quarter: 2010Q1

REPORT INFORMATION
  Report Type: 
  Country: None (occurrence: None)
  Receive Date: 20100212
  Receipt Date: 20090831
  Transmission Date: 20100710
  Serious: No
  Sender: FDA-Public Use
  Company Number: 2009-00562

PATIENT
  Age: 81 Year
  Sex: Male
  Weight: 76.2043 kg

DRUGS (7)
  1. ZICAM COLD REMEDY NASAL GEL [Suspect]
     Dosage: BID, 1.5 YRS; ABOUT 1.5 YRS AGO-RECENT
  2. DILANTIN [Concomitant]
  3. PROPRANOLOL HYDROCHLORIDE [Concomitant]
  4. MULTI-VITAMIN [Concomitant]
  5. VITAMIN C [Concomitant]
  6. VITAMIN B-12 [Concomitant]
  7. CALTRATE [Concomitant]

REACTIONS (1)
  - AGEUSIA [None]
